FAERS Safety Report 18860960 (Version 1)
Quarter: 2021Q1

REPORT INFORMATION
  Report Type: Spontaneous
  Country: FR (occurrence: FR)
  Receive Date: 20210208
  Receipt Date: 20210208
  Transmission Date: 20210420
  Serious: Yes (Death, Life-Threatening, Congenital Anomaly)
  Sender: FDA-Public Use
  Company Number: NVSC2021FR023560

PATIENT
  Sex: Female

DRUGS (3)
  1. ZOPHREN [Suspect]
     Active Substance: ONDANSETRON
     Indication: FOETAL EXPOSURE DURING PREGNANCY
     Dosage: MATERNAL DOSE: UNK
     Route: 064
     Dates: start: 20180228
  2. SPECIAFOLDINE [Concomitant]
     Active Substance: FOLIC ACID
     Indication: FOETAL EXPOSURE DURING PREGNANCY
     Dosage: MATERNAL DOSE: UNK, QD
     Route: 064
  3. ASPEGIC (ACETYLSALICYLATE LYSINE) [Suspect]
     Active Substance: ASPIRIN DL-LYSINE
     Indication: FOETAL EXPOSURE DURING PREGNANCY
     Dosage: MATERNAL DOSE: UNK
     Route: 064
     Dates: start: 20180228

REACTIONS (3)
  - Oesophageal atresia [Fatal]
  - Ventricular septal defect [Fatal]
  - Tracheal atresia [Fatal]

NARRATIVE: CASE EVENT DATE: 20180925
